FAERS Safety Report 16216029 (Version 2)
Quarter: 2019Q2

REPORT INFORMATION
  Report Type: Spontaneous
  Country: US (occurrence: US)
  Receive Date: 20190419
  Receipt Date: 20190419
  Transmission Date: 20190711
  Serious: Yes (Hospitalization)
  Sender: FDA-Public Use
  Company Number: US-ORPHAN EUROPE-2066035

PATIENT
  Age: 9 Year
  Sex: Female

DRUGS (4)
  1. CARBAGLU [Suspect]
     Active Substance: CARGLUMIC ACID
     Indication: CARNITINE PALMITOYLTRANSFERASE DEFICIENCY
     Dates: start: 20190226
  2. LEVOCARNITINE. [Concomitant]
     Active Substance: LEVOCARNITINE
  3. LIQUIGEN [Concomitant]
     Active Substance: MEDIUM-CHAIN TRIGLYCERIDES
  4. MONOGEN [Concomitant]

REACTIONS (6)
  - Hospitalisation [Unknown]
  - Ammonia increased [Unknown]
  - Vomiting [Unknown]
  - Headache [Unknown]
  - Fatigue [Unknown]
  - Off label use [Unknown]

NARRATIVE: CASE EVENT DATE: 20190226
